FAERS Safety Report 5162056-0 (Version None)
Quarter: 2006Q4

REPORT INFORMATION
  Report Type: 
  Country: None (occurrence: None)
  Receive Date: 20061121
  Receipt Date: 20061113
  Transmission Date: 20070319
  Serious: Yes (Life-Threatening)
  Sender: FDA-Public Use
  Company Number: 06H-083-0311171-00

PATIENT

DRUGS (1)
  1. DOBUTAMINE INJECTION (DOBUTAMINE HYDROCHLORIDE INJECTION) (DOBUTAMINE [Suspect]
     Indication: STRESS ECHOCARDIOGRAM
     Dosage: SEE IMAGE

REACTIONS (5)
  - CARDIAC VENTRICULAR DISORDER [None]
  - CHEST PAIN [None]
  - DYSPNOEA [None]
  - MYOCARDIAL ISCHAEMIA [None]
  - VENTRICULAR FIBRILLATION [None]
